FAERS Safety Report 11158578 (Version 1)
Quarter: 2015Q2

REPORT INFORMATION
  Report Type: Spontaneous
  Country: US (occurrence: None)
  Receive Date: 20150602
  Receipt Date: 20150602
  Transmission Date: 20150821
  Serious: Yes (Hospitalization)
  Sender: FDA-Public Use
  Company Number: None

PATIENT
  Age: 16 Year
  Sex: Female
  Weight: 58.4 kg

DRUGS (1)
  1. ONCASPAR [Suspect]
     Active Substance: PEGASPARGASE
     Dates: start: 20150420

REACTIONS (11)
  - Unresponsive to stimuli [None]
  - Tonic clonic movements [None]
  - Pyrexia [None]
  - Cerebral haemorrhage [None]
  - Neutropenia [None]
  - Superior sagittal sinus thrombosis [None]
  - Blood pressure increased [None]
  - Lethargy [None]
  - Venous thrombosis [None]
  - Brain oedema [None]
  - Peroneal nerve palsy [None]

NARRATIVE: CASE EVENT DATE: 20150430
